FAERS Safety Report 4794978-4 (Version None)
Quarter: 2005Q4

REPORT INFORMATION
  Report Type: 
  Country: None (occurrence: None)
  Receive Date: 20051006
  Receipt Date: 20050728
  Transmission Date: 20060501
  Serious: Yes (Other)
  Sender: FDA-Public Use
  Company Number: 11923

PATIENT
  Age: 30 Year
  Sex: Male
  Weight: 50 kg

DRUGS (1)
  1. FAULCURIUM [Suspect]
     Indication: ANAESTHESIA
     Dosage: 100 MG TOTAL IV
     Route: 042
     Dates: start: 20050614, end: 20050614

REACTIONS (1)
  - DRUG INEFFECTIVE [None]
